FAERS Safety Report 7978566-4 (Version None)
Quarter: 2011Q4

REPORT INFORMATION
  Report Type: 
  Country: None (occurrence: None)
  Receive Date: 20111129
  Receipt Date: 20110928
  Transmission Date: 20120403
  Serious: No
  Sender: FDA-Public Use
  Company Number: PHEH2011US05369

PATIENT
  Age: 24 Year
  Sex: Male

DRUGS (5)
  1. AFINITOR [Suspect]
     Indication: ASTROCYTOMA, LOW GRADE
     Dosage: 06 MG, UNK
     Dates: start: 20110623
  2. CLONIDINE [Concomitant]
  3. TOPAMAX [Concomitant]
  4. LAMICTAL [Concomitant]
  5. DEPAKOTE [Concomitant]

REACTIONS (1)
  - DRUG LEVEL BELOW THERAPEUTIC [None]
